FAERS Safety Report 12748343 (Version 1)
Quarter: 2016Q3

REPORT INFORMATION
  Report Type: Spontaneous
  Country: US (occurrence: US)
  Receive Date: 20160915
  Receipt Date: 20160915
  Transmission Date: 20161109
  Serious: No
  Sender: FDA-Public Use
  Company Number: US-ASTRAZENECA-2016SE94826

PATIENT
  Age: 80 Year
  Sex: Male
  Weight: 88.5 kg

DRUGS (1)
  1. PULMICORT FLEXHALER [Suspect]
     Active Substance: BUDESONIDE
     Indication: ASTHMA
     Dosage: 180 MCG 225 MG, 2 PUFFS TWICE A DAY
     Route: 055
     Dates: start: 2015

REACTIONS (4)
  - Asthma [Unknown]
  - Drug dose omission [Unknown]
  - Gastric disorder [Unknown]
  - Productive cough [Unknown]

NARRATIVE: CASE EVENT DATE: 2016
